FAERS Safety Report 8478173-3 (Version None)
Quarter: 2012Q2

REPORT INFORMATION
  Report Type: 
  Country: None (occurrence: None)
  Receive Date: 20120629
  Receipt Date: 20120625
  Transmission Date: 20120825
  Serious: Yes (Hospitalization)
  Sender: FDA-Public Use
  Company Number: PHHY2012FR054974

PATIENT
  Age: 62 Year
  Sex: Female

DRUGS (10)
  1. CERTICAN [Suspect]
     Dosage: 2 MG, BID
     Route: 048
     Dates: start: 20100101, end: 20120606
  2. KARDEGIC [Concomitant]
     Dosage: 75 MG, DAILY
  3. POTASSIUM CHLORIDE [Concomitant]
  4. LASIX [Concomitant]
     Dosage: 40 MG, DAILY
  5. NOVONORM [Concomitant]
  6. ATORVASTATIN [Concomitant]
     Dosage: 10 MG, DAILY
  7. PREDNISOLONE [Concomitant]
     Dosage: 5 MG, DAILY
  8. ALPHAGAN [Concomitant]
     Dosage: 10 DRP, BID
  9. TACROLIMUS [Concomitant]
     Dosage: 6 MG, DAILY
  10. CORDARONE [Concomitant]
     Dosage: 200 MG, UNK

REACTIONS (4)
  - RENAL TUBULAR NECROSIS [None]
  - THROMBOTIC MICROANGIOPATHY [None]
  - RENAL INJURY [None]
  - PROTEINURIA [None]
